FAERS Safety Report 9462575 (Version 2)
Quarter: 2013Q3

REPORT INFORMATION
  Report Type: Spontaneous
  Country: DK (occurrence: DK)
  Receive Date: 20130816
  Receipt Date: 20130904
  Transmission Date: 20140515
  Serious: Yes (Other)
  Sender: FDA-Public Use
  Company Number: DK-PFIZER INC-2013237418

PATIENT
  Age: 56 Year
  Sex: Male

DRUGS (3)
  1. CABERGOLINE [Suspect]
     Dosage: 8 MG/DAY
  2. ENTACAPONE [Suspect]
     Dosage: 600 MG/DAY
  3. LEVODOPA [Suspect]
     Dosage: 300 MG/DAY

REACTIONS (2)
  - Pathological gambling [Unknown]
  - Parkinson^s disease [Unknown]
